FAERS Safety Report 15858062 (Version 1)
Quarter: 2018Q4

REPORT INFORMATION
  Report Type: Spontaneous
  Country: US (occurrence: US)
  Receive Date: 20181227
  Receipt Date: 20181227
  Transmission Date: 20190205
  Serious: No
  Sender: FDA-Public Use
  Company Number: None

PATIENT
  Age: 50 Year
  Sex: Female

DRUGS (1)
  1. COPAXONE [Suspect]
     Active Substance: GLATIRAMER ACETATE
     Dates: start: 20181225, end: 20181227

REACTIONS (3)
  - Fatigue [None]
  - Hypoaesthesia [None]
  - Therapy cessation [None]

NARRATIVE: CASE EVENT DATE: 20181227
